FAERS Safety Report 4608470-0 (Version None)
Quarter: 2005Q1

REPORT INFORMATION
  Report Type: 
  Country: None (occurrence: None)
  Receive Date: 20050311
  Receipt Date: 20050311
  Transmission Date: 20050727
  Serious: Yes (Hospitalization)
  Sender: FDA-Public Use
  Company Number: None

PATIENT
  Age: 71 Year
  Sex: Male
  Weight: 86.637 kg

DRUGS (1)
  1. OXYCODONE [Suspect]
     Indication: CANCER PAIN
     Dosage: 1-2 TABS  Q6H PRN ORAL
     Route: 048
     Dates: start: 20050128, end: 20050226

REACTIONS (4)
  - ABDOMINAL PAIN [None]
  - CONSTIPATION [None]
  - NAUSEA [None]
  - VOMITING [None]
